FAERS Safety Report 17404875 (Version 1)
Quarter: 2020Q1

REPORT INFORMATION
  Report Type: Spontaneous
  Country: US (occurrence: US)
  Receive Date: 20200211
  Receipt Date: 20200211
  Transmission Date: 20200409
  Serious: Yes (Hospitalization)
  Sender: FDA-Public Use
  Company Number: US-MTPC-MTDA2020-0042540

PATIENT

DRUGS (1)
  1. RADICAVA [Suspect]
     Active Substance: EDARAVONE
     Indication: AMYOTROPHIC LATERAL SCLEROSIS
     Dosage: 60 MILLIGRAM,OVER 60 MINS QD FOR 14 DAYS FOLLOWED BY 14-DAY DRUG-FREE PERIOD
     Route: 042
     Dates: start: 20200204

REACTIONS (2)
  - Constipation [Unknown]
  - Abdominal pain upper [Unknown]
